FAERS Safety Report 16668550 (Version 2)
Quarter: 2019Q3

REPORT INFORMATION
  Report Type: Spontaneous
  Country: EG (occurrence: EG)
  Receive Date: 20190805
  Receipt Date: 20190815
  Transmission Date: 20191004
  Serious: Yes (Hospitalization, Other)
  Sender: FDA-Public Use
  Company Number: EG-NOVOPROD-671894

PATIENT
  Sex: Male
  Weight: 83 kg

DRUGS (3)
  1. VENTAL COMP [Concomitant]
     Active Substance: ALBUTEROL SULFATE\BECLOMETHASONE DIPROPIONATE
     Indication: CHEST DISCOMFORT
     Dosage: AS PER NEED,  3 YEARS AGO.
     Route: 055
  2. MIXTARD 30 HM PENFILL [Suspect]
     Active Substance: INSULIN HUMAN
     Indication: DIABETES MELLITUS
     Dosage: 40 IU, QD (25 U/MORNING + 15 U/DINNER)
     Route: 058
     Dates: start: 201404
  3. GALVUS [Concomitant]
     Active Substance: VILDAGLIPTIN
     Indication: DIABETES MELLITUS
     Dosage: AS PER NEED
     Route: 048

REACTIONS (2)
  - Nasal polyps [Recovered/Resolved]
  - Hyperglycaemia [Not Recovered/Not Resolved]
